FAERS Safety Report 11183609 (Version 1)
Quarter: 2015Q2

REPORT INFORMATION
  Report Type: Spontaneous
  Country: US (occurrence: US)
  Receive Date: 20150612
  Receipt Date: 20150612
  Transmission Date: 20150821
  Serious: Yes (Other)
  Sender: FDA-Public Use
  Company Number: US-BEH-2015051605

PATIENT

DRUGS (1)
  1. NON-ACTIVATED FOUR FACTOR PCC (PROTHROMBIN COMPLEX CONCENTRATE) [Suspect]
     Active Substance: COAGULATION FACTOR IX HUMAN\COAGULATION FACTOR VII HUMAN\COAGULATION FACTOR X HUMAN\PROTHROMBIN
     Indication: HAEMORRHAGE

REACTIONS (1)
  - Deep vein thrombosis [Unknown]
